FAERS Safety Report 20383490 (Version 1)
Quarter: 2022Q1

REPORT INFORMATION
  Report Type: Spontaneous
  Country: US (occurrence: US)
  Receive Date: 20220127
  Receipt Date: 20220127
  Transmission Date: 20220424
  Serious: Yes (Other)
  Sender: FDA-Public Use
  Company Number: US-PFIZER INC-202200075002

PATIENT
  Age: 72 Year
  Sex: Male

DRUGS (1)
  1. CAVERJECT IMPULSE [Suspect]
     Active Substance: ALPROSTADIL
     Dosage: 20 UG, AS NEEDED (INJECT 2X WEEKLY AS NEEDED)
     Route: 017

REACTIONS (1)
  - Neoplasm malignant [Unknown]
